FAERS Safety Report 26087031 (Version 1)
Quarter: 2025Q4

REPORT INFORMATION
  Report Type: Spontaneous
  Country: CN (occurrence: CN)
  Receive Date: 20251125
  Receipt Date: 20251125
  Transmission Date: 20260118
  Serious: Yes (Other)
  Sender: RANBAXY
  Company Number: CN-SUN PHARMACEUTICAL INDUSTRIES INC-2025R1-538031

PATIENT
  Age: 9 Year
  Sex: Male

DRUGS (5)
  1. DECITABINE [Suspect]
     Active Substance: DECITABINE
     Indication: Chemotherapy
     Dosage: 20 MILLIGRAM, DAYS 1-5
     Route: 065
  2. OLAPARIB [Suspect]
     Active Substance: OLAPARIB
     Indication: Chemotherapy
     Dosage: 150 MILLIGRAM, BID, DAYS 1-16
     Route: 065
  3. ACLARUBICIN [Concomitant]
     Active Substance: ACLARUBICIN
     Indication: Chemotherapy
     Dosage: 10 MILLIGRAM, DAYS 3-10
     Route: 065
  4. CYTARABINE [Concomitant]
     Active Substance: CYTARABINE
     Indication: Chemotherapy
     Dosage: 20 MILLIGRAM, DAYS 3-16
     Route: 065
  5. GRANULOCYTE COLONY-STIMULATING FACTOR NOS [Concomitant]
     Active Substance: GRANULOCYTE COLONY-STIMULATING FACTOR NOS
     Indication: Chemotherapy
     Dosage: 150 MICROGRAM, DAYS 3-10
     Route: 065

REACTIONS (1)
  - Treatment failure [Unknown]
